FAERS Safety Report 11395664 (Version 1)
Quarter: 2015Q3

REPORT INFORMATION
  Report Type: Spontaneous
  Country: US (occurrence: US)
  Receive Date: 20150819
  Receipt Date: 20150819
  Transmission Date: 20151125
  Serious: Yes (Other)
  Sender: FDA-Public Use
  Company Number: US-JNJFOC-20150800316

PATIENT
  Sex: Female

DRUGS (2)
  1. XARELTO [Suspect]
     Active Substance: RIVAROXABAN
     Indication: THROMBOSIS
     Route: 048
     Dates: start: 201507
  2. XARELTO [Suspect]
     Active Substance: RIVAROXABAN
     Indication: THROMBOSIS
     Route: 048
     Dates: start: 201506, end: 201507

REACTIONS (4)
  - Ultrasound uterus [Not Recovered/Not Resolved]
  - Vaginal haemorrhage [Recovered/Resolved]
  - Gastric disorder [Not Recovered/Not Resolved]
  - Uterine disorder [Not Recovered/Not Resolved]

NARRATIVE: CASE EVENT DATE: 201506
